FAERS Safety Report 11744351 (Version 1)
Quarter: 2015Q4

REPORT INFORMATION
  Report Type: Spontaneous
  Country: US (occurrence: US)
  Receive Date: 20151116
  Receipt Date: 20151116
  Transmission Date: 20160304
  Serious: No
  Sender: FDA-Public Use
  Company Number: US-MYLANLABS-2015M1002828

PATIENT
  Age: 58 Year
  Sex: Female

DRUGS (3)
  1. MAPROTILINE HYDROCHLORIDE TABLETS, USP [Suspect]
     Active Substance: MAPROTILINE HYDROCHLORIDE
     Indication: SLEEP DISORDER
     Dosage: 50 MG, QD
     Route: 048
     Dates: start: 20150126
  2. MAPROTILINE HYDROCHLORIDE TABLETS, USP [Suspect]
     Active Substance: MAPROTILINE HYDROCHLORIDE
     Indication: OFF LABEL USE
  3. MAPROTILINE HYDROCHLORIDE TABLETS, USP [Suspect]
     Active Substance: MAPROTILINE HYDROCHLORIDE
     Indication: PAIN

REACTIONS (1)
  - Gastrooesophageal reflux disease [Not Recovered/Not Resolved]

NARRATIVE: CASE EVENT DATE: 20150127
